FAERS Safety Report 5661091-3 (Version None)
Quarter: 2008Q1

REPORT INFORMATION
  Report Type: 
  Country: None (occurrence: None)
  Receive Date: 20080305
  Receipt Date: 20080220
  Transmission Date: 20080703
  Serious: Yes (Other)
  Sender: FDA-Public Use
  Company Number: 2008004312

PATIENT
  Age: 45 Year
  Sex: Female
  Weight: 70.7611 kg

DRUGS (2)
  1. LISTERINE WHITENING QUICK DISSOLVING STRIPS (NO ACTIVE INGREDIENT) [Suspect]
     Indication: DENTAL CARE
     Dosage: 2 STRIPS - 1 ON TOP AND 1 ON BOTTOM, ONCE, ORAL
     Route: 048
     Dates: start: 20071230, end: 20071230
  2. ASPIRIN [Concomitant]

REACTIONS (3)
  - BURNING SENSATION [None]
  - HYPERSENSITIVITY [None]
  - LIP SWELLING [None]
